FAERS Safety Report 7052629-2 (Version None)
Quarter: 2010Q4

REPORT INFORMATION
  Report Type: 
  Country: None (occurrence: None)
  Receive Date: 20101019
  Receipt Date: 20100301
  Transmission Date: 20110411
  Serious: Yes (Hospitalization, Other)
  Sender: FDA-Public Use
  Company Number: CA-GENENTECH-269410

PATIENT
  Sex: Female
  Weight: 64 kg

DRUGS (1)
  1. OMALIZUMAB [Suspect]
     Indication: ASTHMA
     Dosage: 150 MG, Q4W
     Route: 058
     Dates: start: 20070827

REACTIONS (7)
  - CACHEXIA [None]
  - CONCUSSION [None]
  - HEAD INJURY [None]
  - HYPOPHAGIA [None]
  - OESOPHAGEAL PAIN [None]
  - SPINAL NERVE STIMULATOR IMPLANTATION [None]
  - WEIGHT DECREASED [None]
